FAERS Safety Report 9230226 (Version 2)
Quarter: 2016Q2

REPORT INFORMATION
  Report Type: Report from Study
  Country: US (occurrence: US)
  Receive Date: 20130415
  Receipt Date: 20160609
  Transmission Date: 20160815
  Serious: Yes (Other)
  Sender: FDA-Public Use
  Company Number: US-RANBAXY-2013US-67296

PATIENT
  Age: 12 Year
  Sex: Male

DRUGS (6)
  1. FLUOXETINE [Suspect]
     Active Substance: FLUOXETINE HYDROCHLORIDE
     Dosage: 20 MG, DAILY
     Route: 065
  2. FLUOXETINE [Suspect]
     Active Substance: FLUOXETINE HYDROCHLORIDE
     Indication: OBSESSIVE-COMPULSIVE DISORDER
     Dosage: 20 MG, QD (0.57 MG/KG)
     Route: 065
  3. FLUOXETINE [Suspect]
     Active Substance: FLUOXETINE HYDROCHLORIDE
     Indication: OBSESSIVE-COMPULSIVE DISORDER
     Dosage: 20 MG, QOD
     Route: 065
  4. FLUOXETINE [Suspect]
     Active Substance: FLUOXETINE HYDROCHLORIDE
     Indication: OBSESSIVE-COMPULSIVE DISORDER
     Dosage: 20MG FLUOXETINE TABLET (ALONGWITH A DOSE OF 20 MG/DAILY)
     Route: 065
  5. FLUOXETINE [Suspect]
     Active Substance: FLUOXETINE HYDROCHLORIDE
     Indication: OBSESSIVE-COMPULSIVE DISORDER
     Dosage: 20 MG, DAILY (GIVEN ALONGWITH 1 EXTRA 20MG FLUOXETINE TABLET)
     Route: 065
  6. FLUOXETINE [Suspect]
     Active Substance: FLUOXETINE HYDROCHLORIDE
     Indication: OBSESSIVE-COMPULSIVE DISORDER
     Dosage: 20 MG, DAILY
     Route: 065

REACTIONS (12)
  - School refusal [Recovered/Resolved]
  - Self-injurious ideation [Unknown]
  - Euphoric mood [Unknown]
  - Chest pain [Unknown]
  - Nausea [Unknown]
  - Insomnia [Unknown]
  - Agitation [Unknown]
  - Anxiety [Recovering/Resolving]
  - Nightmare [Unknown]
  - Abnormal dreams [Unknown]
  - Suicidal ideation [Unknown]
  - Serum serotonin decreased [Unknown]
